FAERS Safety Report 17495818 (Version 1)
Quarter: 2020Q1

REPORT INFORMATION
  Report Type: Spontaneous
  Country: US (occurrence: US)
  Receive Date: 20200303
  Receipt Date: 20200303
  Transmission Date: 20200409
  Serious: Yes (Hospitalization, Other)
  Sender: FDA-Public Use
  Company Number: US-ASSERTIO THERAPEUTICS, INC.-US-2020DEP000141

PATIENT
  Age: 44 Year
  Sex: Male
  Weight: 88 kg

DRUGS (4)
  1. CLINDAMYCIN HCL [Suspect]
     Active Substance: CLINDAMYCIN HYDROCHLORIDE
     Dosage: 300 MG, QD
  2. CLINDAMYCIN HCL [Suspect]
     Active Substance: CLINDAMYCIN HYDROCHLORIDE
     Indication: PRODUCT USED FOR UNKNOWN INDICATION
     Dosage: 150 MG, TID
     Route: 065
     Dates: start: 20190716
  3. GABAPENTIN. [Suspect]
     Active Substance: GABAPENTIN
     Indication: PAIN
     Dosage: 800 MG, QID
  4. GABAPENTIN. [Suspect]
     Active Substance: GABAPENTIN
     Indication: SEIZURE
     Dosage: 800 MG, TID

REACTIONS (11)
  - Disorientation [Unknown]
  - Aggression [Unknown]
  - Drug interaction [Unknown]
  - Muscle spasms [Unknown]
  - Diarrhoea [Unknown]
  - Irritability [Unknown]
  - Dehydration [Unknown]
  - Headache [Unknown]
  - Muscle twitching [Unknown]
  - Seizure [Recovered/Resolved with Sequelae]
  - Intentional product misuse [Unknown]

NARRATIVE: CASE EVENT DATE: 20200125
